FAERS Safety Report 12104854 (Version 2)
Quarter: 2016Q1

REPORT INFORMATION
  Report Type: Spontaneous
  Country: US (occurrence: US)
  Receive Date: 20160223
  Receipt Date: 20160309
  Transmission Date: 20160526
  Serious: No
  Sender: FDA-Public Use
  Company Number: US-PFIZER INC-2016081246

PATIENT
  Sex: Male

DRUGS (3)
  1. LIPITOR [Suspect]
     Active Substance: ATORVASTATIN CALCIUM
     Dosage: UNK
     Dates: start: 2015
  2. ADVIL [Interacting]
     Active Substance: IBUPROFEN
  3. METFORMIN HCL [Interacting]
     Active Substance: METFORMIN HYDROCHLORIDE

REACTIONS (2)
  - Drug interaction [Unknown]
  - Chest pain [Unknown]
